FAERS Safety Report 12773748 (Version 1)
Quarter: 2016Q3

REPORT INFORMATION
  Report Type: Spontaneous
  Country: US (occurrence: US)
  Receive Date: 20160923
  Receipt Date: 20160923
  Transmission Date: 20161109
  Serious: No
  Sender: FDA-Public Use
  Company Number: US-ASTRAZENECA-2016SF00248

PATIENT
  Age: 28842 Day
  Sex: Female
  Weight: 81.6 kg

DRUGS (2)
  1. BRILINTA [Suspect]
     Active Substance: TICAGRELOR
     Indication: ACUTE CORONARY SYNDROME
     Dosage: 90 MG BY MOUTH, TWICE DAILY
     Route: 048
     Dates: start: 201606
  2. BRILINTA [Suspect]
     Active Substance: TICAGRELOR
     Indication: MYOCARDIAL INFARCTION
     Dosage: 90 MG BY MOUTH, TWICE DAILY
     Route: 048
     Dates: start: 201606

REACTIONS (1)
  - Pain in extremity [Unknown]

NARRATIVE: CASE EVENT DATE: 20160902
